FAERS Safety Report 7061007-1 (Version None)
Quarter: 2010Q4

REPORT INFORMATION
  Report Type: 
  Country: None (occurrence: None)
  Receive Date: 20101026
  Receipt Date: 20101019
  Transmission Date: 20110411
  Serious: Yes (Death)
  Sender: FDA-Public Use
  Company Number: DK-JNJFOC-20100201478

PATIENT
  Sex: Female

DRUGS (2)
  1. REOPRO [Suspect]
     Indication: PERCUTANEOUS CORONARY INTERVENTION
  2. CLOPIDOGREL [Concomitant]
     Indication: PRODUCT USED FOR UNKNOWN INDICATION

REACTIONS (4)
  - ARTERIOSCLEROSIS CORONARY ARTERY [None]
  - EXSANGUINATION [None]
  - HAEMORRHAGE [None]
  - PLEURAL HAEMORRHAGE [None]
